FAERS Safety Report 9725916 (Version 2)
Quarter: 2013Q4

REPORT INFORMATION
  Report Type: Report from Study
  Country: US (occurrence: US)
  Receive Date: 20131203
  Receipt Date: 20131227
  Transmission Date: 20140711
  Serious: Yes (Hospitalization)
  Sender: FDA-Public Use
  Company Number: US-SA-2013SA122562

PATIENT
  Age: 29 Year
  Sex: Female
  Weight: 77.11 kg

DRUGS (3)
  1. AUBAGIO [Suspect]
     Indication: MULTIPLE SCLEROSIS
     Route: 048
     Dates: start: 201306
  2. CELEXA [Concomitant]
  3. ATENOLOL [Concomitant]

REACTIONS (2)
  - Appendicectomy [Unknown]
  - Abdominal pain [Recovered/Resolved]
